FAERS Safety Report 14783184 (Version 7)
Quarter: 2018Q2

REPORT INFORMATION
  Report Type: Spontaneous
  Country: DE (occurrence: DE)
  Receive Date: 20180420
  Receipt Date: 20180621
  Transmission Date: 20180711
  Serious: Yes (Life-Threatening, Hospitalization)
  Sender: FDA-Public Use
  Company Number: DE-TEVA-2018-DE-883027

PATIENT
  Age: 73 Year
  Sex: Male
  Weight: 59 kg

DRUGS (7)
  1. RISEDRONIC ACID [Suspect]
     Active Substance: RISEDRONIC ACID
     Indication: OSTEOPOROSIS
     Dosage: 35 MG, QWEEK
     Route: 048
  2. PREDNISOLONE. [Suspect]
     Active Substance: PREDNISOLONE
     Indication: RHEUMATOID ARTHRITIS
     Route: 048
  3. TAMSULOSIN [Suspect]
     Active Substance: TAMSULOSIN
     Indication: PROSTATOMEGALY
     Dosage: .8 MILLIGRAM DAILY;
     Route: 048
  4. ROACTEMRA 162 MG [Suspect]
     Active Substance: TOCILIZUMAB
     Indication: RHEUMATOID ARTHRITIS
     Dosage: 162 MG, Q WEEK
     Route: 058
     Dates: start: 201704
  5. DEKRISTOL 20000 [Suspect]
     Active Substance: CHOLECALCIFEROL
     Indication: OSTEOPOROSIS
     Dosage: 20000 IU, Q2 WEEKS
     Route: 048
  6. MYOCHOLINE [Suspect]
     Active Substance: BETHANECHOL CHLORIDE
     Indication: MICTURITION DISORDER
     Dosage: 50 MILLIGRAM DAILY;
     Route: 048
  7. MYOCHOLINE [Suspect]
     Active Substance: BETHANECHOL CHLORIDE
     Dosage: DAILY DOSE: 50 MG MILLGRAM(S) EVERY DAYS
     Route: 048

REACTIONS (1)
  - Oesophageal rupture [Not Recovered/Not Resolved]

NARRATIVE: CASE EVENT DATE: 20171227
